FAERS Safety Report 19980887 (Version 1)
Quarter: 2021Q4

REPORT INFORMATION
  Report Type: Report from Study
  Country: None (occurrence: PR)
  Receive Date: 20211022
  Receipt Date: 20211022
  Transmission Date: 20220303
  Serious: Yes (Other)
  Sender: FDA-Public Use
  Company Number: PR-ABBVIE-21K-131-4077374-00

PATIENT
  Age: 69 Year
  Sex: Male
  Weight: 74.91 kg

DRUGS (2)
  1. VENCLEXTA [Suspect]
     Active Substance: VENETOCLAX
     Indication: Chronic lymphocytic leukaemia
     Route: 048
     Dates: start: 20201224
  2. VENCLEXTA [Suspect]
     Active Substance: VENETOCLAX
     Route: 048

REACTIONS (3)
  - Nodule [Unknown]
  - Cough [Unknown]
  - Mycoplasma infection [Unknown]

NARRATIVE: CASE EVENT DATE: 20210903
